FAERS Safety Report 4588606-0 (Version None)
Quarter: 2005Q1

REPORT INFORMATION
  Report Type: 
  Country: None (occurrence: None)
  Receive Date: 20050222
  Receipt Date: 20050211
  Transmission Date: 20050727
  Serious: Yes (Other)
  Sender: FDA-Public Use
  Company Number: BR-ROCHE-395409

PATIENT
  Age: 20 Year
  Sex: Female
  Weight: 45 kg

DRUGS (5)
  1. VALIUM [Suspect]
     Indication: ANXIETY
     Route: 048
  2. VALIUM [Suspect]
     Route: 048
     Dates: start: 20050115, end: 20050115
  3. VALIUM [Suspect]
     Route: 048
  4. ETHANOL [Concomitant]
  5. BUSCOPAN [Concomitant]
     Dosage: DOSE TAKEN ^SOMETIMES^
     Route: 048

REACTIONS (4)
  - ANOREXIA [None]
  - MOOD ALTERED [None]
  - OVERDOSE [None]
  - SUICIDE ATTEMPT [None]
